FAERS Safety Report 10404386 (Version 1)
Quarter: 2014Q3

REPORT INFORMATION
  Report Type: Spontaneous
  Country: BR (occurrence: BR)
  Receive Date: 20140823
  Receipt Date: 20140823
  Transmission Date: 20150326
  Serious: Yes (Other)
  Sender: FDA-Public Use
  Company Number: PHHY2014BR105070

PATIENT
  Age: 49 Year
  Sex: Female

DRUGS (5)
  1. ALCYTAM [Concomitant]
     Indication: DEPRESSION
     Dosage: 2 DF, DAILY (TWO TABLETS PER DAY)
  2. TEGRETOL [Suspect]
     Active Substance: CARBAMAZEPINE
     Indication: ANXIETY
     Dosage: 1 DF, DAILY (ONE TABLET PER DAY)
     Route: 048
  3. ALCYTAM [Concomitant]
     Dosage: 1 DF, DAILY (ONE TABLET PER DAY)
  4. TEGRETOL [Suspect]
     Active Substance: CARBAMAZEPINE
     Indication: DEPRESSION
     Dosage: 2 DF, DAILY (TWO TABLETS PER DAY)
     Route: 048
  5. ANSITEC [Concomitant]
     Active Substance: BUSPIRONE HYDROCHLORIDE
     Indication: ANXIETY
     Dosage: 2 DF, DAY (TWO TABLETS PER DAY)

REACTIONS (2)
  - Osteopenia [Unknown]
  - Osteoporosis [Unknown]
